FAERS Safety Report 17510458 (Version 1)
Quarter: 2020Q1

REPORT INFORMATION
  Report Type: Spontaneous
  Country: FR (occurrence: FR)
  Receive Date: 20200306
  Receipt Date: 20200306
  Transmission Date: 20200409
  Serious: Yes (Other)
  Sender: FDA-Public Use
  Company Number: FR-JNJFOC-20200238611

PATIENT
  Age: 54 Year
  Sex: Female

DRUGS (1)
  1. TREVICTA [Suspect]
     Active Substance: PALIPERIDONE PALMITATE
     Indication: PRODUCT USED FOR UNKNOWN INDICATION
     Route: 030
     Dates: start: 201911

REACTIONS (7)
  - Dyspnoea [Unknown]
  - Musculoskeletal stiffness [Unknown]
  - Phlebitis [Unknown]
  - Depressed level of consciousness [Unknown]
  - Chest pain [Unknown]
  - Dyskinesia [Unknown]
  - Headache [Unknown]
